FAERS Safety Report 23776464 (Version 2)
Quarter: 2025Q3

REPORT INFORMATION
  Report Type: Spontaneous
  Country: KR (occurrence: KR)
  Receive Date: 20240424
  Receipt Date: 20250826
  Transmission Date: 20251020
  Serious: Yes (Hospitalization, Other)
  Sender: ACCORD
  Company Number: KR-Accord-420079

PATIENT
  Age: 48 Year
  Sex: Male

DRUGS (1)
  1. CISPLATIN [Suspect]
     Active Substance: CISPLATIN
     Indication: Squamous cell carcinoma
     Dates: start: 20221129, end: 20230116

REACTIONS (1)
  - Bell^s palsy [Recovering/Resolving]

NARRATIVE: CASE EVENT DATE: 20230215
